FAERS Safety Report 8401053-6 (Version None)
Quarter: 2012Q2

REPORT INFORMATION
  Report Type: 
  Country: None (occurrence: None)
  Receive Date: 20120525
  Receipt Date: 20120516
  Transmission Date: 20120825
  Serious: Yes (Death, Other)
  Sender: FDA-Public Use
  Company Number: 2012SP026939

PATIENT
  Age: 66 Year
  Sex: Female

DRUGS (5)
  1. TEMOZOLOMIDE [Suspect]
     Indication: OLIGODENDROGLIOMA
  2. LOMUSTINE [Suspect]
     Indication: OLIGODENDROGLIOMA
  3. CARMUSTINE [Suspect]
     Indication: OLIGODENDROGLIOMA
  4. PROCARBAZINE HYDROCHLORIDE [Suspect]
     Indication: OLIGODENDROGLIOMA
  5. VINCRISTINE [Suspect]
     Indication: OLIGODENDROGLIOMA

REACTIONS (4)
  - BONE MARROW TOXICITY [None]
  - MYELODYSPLASTIC SYNDROME [None]
  - ACUTE MYELOID LEUKAEMIA [None]
  - REFRACTORY ANAEMIA WITH AN EXCESS OF BLASTS [None]
